FAERS Safety Report 8105669-6 (Version None)
Quarter: 2012Q1

REPORT INFORMATION
  Report Type: 
  Country: None (occurrence: None)
  Receive Date: 20120201
  Receipt Date: 20120125
  Transmission Date: 20120608
  Serious: Yes (Hospitalization, Disabling, Other)
  Sender: FDA-Public Use
  Company Number: US-CELGENEUS-163-21880-11092377

PATIENT
  Sex: Male
  Weight: 72.64 kg

DRUGS (12)
  1. LIPITOR [Concomitant]
     Dosage: 40 MILLIGRAM
     Route: 048
     Dates: start: 20010101
  2. CEPHALEXIN [Concomitant]
     Dosage: 500 MILLIGRAM
     Route: 048
     Dates: start: 20090101
  3. LOTREL [Concomitant]
     Dosage: 10 MILLIGRAM
     Route: 048
     Dates: start: 20010101
  4. TOPROL-XL [Concomitant]
     Dosage: 50 MILLIGRAM
     Route: 048
     Dates: start: 20010101
  5. STEROID [Concomitant]
     Route: 065
     Dates: start: 20110710, end: 20110710
  6. DEXAMETHASONE [Concomitant]
     Dosage: 20 MILLIGRAM
     Route: 048
     Dates: start: 20110624
  7. ASPIRIN [Concomitant]
     Dosage: 81 MILLIGRAM
     Route: 048
     Dates: start: 20010101
  8. OMEPRAZOLE [Concomitant]
     Dosage: 20 MILLIGRAM
     Route: 048
     Dates: start: 20090101
  9. VITAMIN B-12 [Concomitant]
     Route: 065
     Dates: start: 20090101
  10. VELCADE [Concomitant]
     Route: 065
     Dates: start: 20110624, end: 20110725
  11. PREDNISONE TAB [Concomitant]
     Route: 048
     Dates: start: 20110711
  12. REVLIMID [Suspect]
     Indication: MULTIPLE MYELOMA
     Dosage: 15 MILLIGRAM
     Route: 048
     Dates: start: 20110624, end: 20110101

REACTIONS (3)
  - MULTIPLE MYELOMA [None]
  - RASH [None]
  - COGNITIVE DISORDER [None]
